FAERS Safety Report 8375978 (Version 2)
Quarter: 2013Q1

REPORT INFORMATION
  Report Type: Report from Study
  Country: US (occurrence: US)
  Receive Date: 20120129
  Receipt Date: 20130130
  Transmission Date: 20140127
  Serious: No
  Sender: FDA-Public Use
  Company Number: US-ABBOTT-11P-163-0883693-00

PATIENT
  Sex: Male
  Weight: 88.53 kg

DRUGS (11)
  1. HUMIRA [Suspect]
     Indication: CROHN^S DISEASE
     Dates: start: 20111020
  2. HUMIRA [Suspect]
     Dates: start: 2012, end: 20120716
  3. HUMIRA [Suspect]
     Dates: start: 20120717
  4. LIBRAX [Concomitant]
     Indication: DRUG THERAPY
     Dosage: 5/2.5MG QID
  5. PROZAC [Concomitant]
     Indication: ANXIETY
  6. PROZAC [Concomitant]
     Indication: DEPRESSION
  7. XANAX [Concomitant]
     Indication: ANXIETY
  8. XANAX [Concomitant]
     Indication: DEPRESSION
  9. IMURAN [Concomitant]
     Indication: DRUG THERAPY
  10. WELLBUTRIN [Concomitant]
     Indication: DEPRESSION
  11. BUSPAR [Concomitant]
     Indication: DRUG THERAPY

REACTIONS (10)
  - Stress [Unknown]
  - Weight decreased [Unknown]
  - Gastrointestinal pain [Unknown]
  - Crohn^s disease [Not Recovered/Not Resolved]
  - Abdominal pain [Not Recovered/Not Resolved]
  - Nausea [Not Recovered/Not Resolved]
  - Drug ineffective [Unknown]
  - Drug ineffective [Unknown]
  - Drug ineffective [Unknown]
  - Diarrhoea [Unknown]
